FAERS Safety Report 24540471 (Version 1)
Quarter: 2024Q4

REPORT INFORMATION
  Report Type: Spontaneous
  Country: CN (occurrence: CN)
  Receive Date: 20241023
  Receipt Date: 20241023
  Transmission Date: 20250115
  Serious: Yes (Death, Other)
  Sender: MERCK
  Company Number: CN-009507513-2410CHN006659

PATIENT
  Age: 76 Year
  Sex: Female

DRUGS (2)
  1. PEMBROLIZUMAB [Suspect]
     Active Substance: PEMBROLIZUMAB
     Indication: Oesophageal squamous cell carcinoma
     Dosage: UNK, TOTAL OF 2 CYCLES
  2. TEGAFUR [Suspect]
     Active Substance: TEGAFUR
     Indication: Oesophageal squamous cell carcinoma
     Dosage: UNK

REACTIONS (2)
  - Pneumonitis [Fatal]
  - Product use issue [Unknown]
